FAERS Safety Report 4504616-3 (Version None)
Quarter: 2004Q4

REPORT INFORMATION
  Report Type: 
  Country: None (occurrence: None)
  Receive Date: 20041118
  Receipt Date: 20041111
  Transmission Date: 20050328
  Serious: Yes (Other)
  Sender: FDA-Public Use
  Company Number: NL-GLAXOSMITHKLINE-B0357032A

PATIENT
  Sex: Male

DRUGS (4)
  1. LAMOTRIGINE [Suspect]
     Indication: BIPOLAR II DISORDER
     Dosage: 5MG UNKNOWN
     Route: 065
     Dates: start: 20041020
  2. THYRAX [Concomitant]
     Dosage: .05MG PER DAY
     Route: 065
  3. EFFEXOR [Concomitant]
     Indication: DEPRESSION
     Dosage: 275MG PER DAY
     Route: 065
  4. PRIADEL [Concomitant]
     Dosage: 12000MG PER DAY
     Route: 065

REACTIONS (3)
  - ABNORMAL SENSATION IN EYE [None]
  - CONJUNCTIVITIS [None]
  - SCLERAL HAEMORRHAGE [None]
